FAERS Safety Report 6922073-4 (Version None)
Quarter: 2010Q3

REPORT INFORMATION
  Report Type: 
  Country: None (occurrence: None)
  Receive Date: 20100812
  Receipt Date: 20100805
  Transmission Date: 20110219
  Serious: Yes (Hospitalization, Disabling)
  Sender: FDA-Public Use
  Company Number: CA-ALLERGAN-1010241US

PATIENT
  Age: 41 Year
  Sex: Female
  Weight: 67.574 kg

DRUGS (11)
  1. BOTOX [Suspect]
     Indication: PRODUCT USED FOR UNKNOWN INDICATION
     Dosage: UNK
     Route: 030
  2. FIORINAL [Concomitant]
  3. FLOVENT [Concomitant]
  4. LOMINE [Concomitant]
  5. MAXALT-MLT [Concomitant]
  6. NASONEX [Concomitant]
     Route: 045
  7. PMS ERYTHROMYCIN OPHTHALMIC [Concomitant]
     Route: 047
  8. CLONAZEPAM [Concomitant]
  9. REACTINE [Concomitant]
  10. RIVOTRIL [Concomitant]
  11. VENTOLIN [Concomitant]

REACTIONS (15)
  - AMNESIA [None]
  - ASPHYXIA [None]
  - CHOKING [None]
  - DYSPHONIA [None]
  - DYSPNOEA [None]
  - FACIAL PARESIS [None]
  - JAW DISORDER [None]
  - LARYNGOSPASM [None]
  - LOSS OF CONSCIOUSNESS [None]
  - MUSCLE CONTRACTIONS INVOLUNTARY [None]
  - MUSCULAR WEAKNESS [None]
  - POSTURE ABNORMAL [None]
  - SPEECH DISORDER [None]
  - TRISMUS [None]
  - VOCAL CORD DISORDER [None]
